FAERS Safety Report 24983022 (Version 1)
Quarter: 2025Q1

REPORT INFORMATION
  Report Type: Spontaneous
  Country: US (occurrence: US)
  Receive Date: 20250218
  Receipt Date: 20250218
  Transmission Date: 20250409
  Serious: No
  Sender: NEUROCRINE BIOSCIENCES
  Company Number: US-NEUROCRINE BIOSCIENCES INC.-2025NBI01469

PATIENT
  Age: 5 Decade
  Sex: Male

DRUGS (3)
  1. INGREZZA [Suspect]
     Active Substance: VALBENAZINE
     Indication: Tardive dyskinesia
     Route: 065
  2. AMANTADINE [Concomitant]
     Active Substance: AMANTADINE
  3. THIORIDAZINE [Concomitant]
     Active Substance: THIORIDAZINE

REACTIONS (1)
  - Rash [Recovered/Resolved]
